FAERS Safety Report 22367871 (Version 7)
Quarter: 2025Q1

REPORT INFORMATION
  Report Type: Report from Study
  Country: BR (occurrence: BR)
  Receive Date: 20230525
  Receipt Date: 20250213
  Transmission Date: 20250408
  Serious: Yes (Hospitalization, Other)
  Sender: TAKEDA
  Company Number: BR-TAKEDA-2023TUS034097

PATIENT
  Age: 45 Year
  Sex: Male
  Weight: 72 kg

DRUGS (5)
  1. VEDOLIZUMAB [Suspect]
     Active Substance: VEDOLIZUMAB
     Indication: Colitis ulcerative
  2. VEDOLIZUMAB [Suspect]
     Active Substance: VEDOLIZUMAB
     Dosage: 300 MILLIGRAM, Q4WEEKS
  3. MESALAMINE [Suspect]
     Active Substance: MESALAMINE
     Indication: Product used for unknown indication
  4. PREDNISONE [Concomitant]
     Active Substance: PREDNISONE
  5. INFLIXIMAB [Concomitant]
     Active Substance: INFLIXIMAB

REACTIONS (8)
  - Colitis ulcerative [Unknown]
  - Inappropriate schedule of product administration [Recovering/Resolving]
  - Victim of crime [Unknown]
  - Weight decreased [Unknown]
  - Visual impairment [Not Recovered/Not Resolved]
  - Product availability issue [Recovered/Resolved]
  - Anxiety [Unknown]
  - Herpes virus infection [Recovering/Resolving]

NARRATIVE: CASE EVENT DATE: 20240723
